FAERS Safety Report 9580214 (Version 1)
Quarter: 2013Q4

REPORT INFORMATION
  Report Type: Spontaneous
  Country: US (occurrence: None)
  Receive Date: 20131001
  Receipt Date: 20131001
  Transmission Date: 20140711
  Serious: No
  Sender: FDA-Public Use
  Company Number: None

PATIENT
  Age: 55 Year
  Sex: Female
  Weight: 99.79 kg

DRUGS (6)
  1. ESCITALOPRAM [Suspect]
     Indication: DEPRESSION
     Dosage: 1/2 TABL
     Route: 048
  2. OXYCONTIN [Concomitant]
  3. IBUPROFEN [Concomitant]
  4. RANITIDINE [Concomitant]
  5. ALBUTEROL [Concomitant]
  6. VICODIN [Concomitant]

REACTIONS (1)
  - Product substitution issue [None]
